FAERS Safety Report 17734884 (Version 1)
Quarter: 2020Q2

REPORT INFORMATION
  Report Type: Spontaneous
  Country: US (occurrence: US)
  Receive Date: 20200501
  Receipt Date: 20200501
  Transmission Date: 20200714
  Serious: No
  Sender: FDA-Public Use
  Company Number: US-RADIUS HEALTH INC.-2020US000578

PATIENT
  Age: 65 Year
  Sex: Female

DRUGS (1)
  1. TYMLOS [Suspect]
     Active Substance: ABALOPARATIDE
     Indication: OSTEOPOROSIS POSTMENOPAUSAL
     Dosage: 80 MCG, QD
     Route: 058
     Dates: start: 20191203, end: 20191206

REACTIONS (9)
  - Pupils unequal [Not Recovered/Not Resolved]
  - Visual acuity reduced [Not Recovered/Not Resolved]
  - Dizziness [Not Recovered/Not Resolved]
  - Feeling abnormal [Recovered/Resolved]
  - Presyncope [Not Recovered/Not Resolved]
  - Orthostatic hypotension [Not Recovered/Not Resolved]
  - Hypotension [Not Recovered/Not Resolved]
  - Autonomic nervous system imbalance [Not Recovered/Not Resolved]
  - Blood pressure increased [Recovered/Resolved]

NARRATIVE: CASE EVENT DATE: 201912
